FAERS Safety Report 22940804 (Version 3)
Quarter: 2023Q4

REPORT INFORMATION
  Report Type: Spontaneous
  Country: US (occurrence: US)
  Receive Date: 20230913
  Receipt Date: 20231008
  Transmission Date: 20240110
  Serious: No
  Sender: FDA-Public Use
  Company Number: US-BRISTOL-MYERS SQUIBB COMPANY-2023-129720

PATIENT
  Age: 88 Year
  Sex: Female
  Weight: 72.57 kg

DRUGS (1)
  1. ELIQUIS [Suspect]
     Active Substance: APIXABAN
     Indication: Thrombosis prophylaxis
     Dosage: FREQ : 180Q/90D
     Route: 048
     Dates: start: 2023, end: 2023

REACTIONS (5)
  - Alopecia [Recovered/Resolved]
  - Diplopia [Recovered/Resolved]
  - Asthenopia [Recovered/Resolved]
  - Retinal migraine [Recovered/Resolved]
  - Eye disorder [Recovered/Resolved]
